FAERS Safety Report 5664235-2 (Version None)
Quarter: 2008Q1

REPORT INFORMATION
  Report Type: 
  Country: None (occurrence: None)
  Receive Date: 20080314
  Receipt Date: 20080310
  Transmission Date: 20080703
  Serious: Yes (Hospitalization)
  Sender: FDA-Public Use
  Company Number: US-GILEAD-2007-0014713

PATIENT
  Sex: Female
  Weight: 99.88 kg

DRUGS (10)
  1. LETAIRIS [Suspect]
     Indication: PULMONARY HYPERTENSION
     Route: 048
     Dates: start: 20071119
  2. CARDIZEM [Concomitant]
     Indication: ESSENTIAL HYPERTENSION
     Route: 048
  3. NEURONTIN [Concomitant]
     Indication: NEUROPATHY PERIPHERAL
     Route: 048
  4. RESTORIL [Concomitant]
     Indication: INSOMNIA
     Route: 048
  5. K-DUR 10 [Concomitant]
     Indication: HYPOKALAEMIA
     Route: 048
  6. ZAROXOLYN [Concomitant]
     Indication: ESSENTIAL HYPERTENSION
     Route: 048
  7. BACLOFEN [Concomitant]
     Indication: MUSCLE SPASMS
     Route: 048
  8. ZOLOFT [Concomitant]
     Indication: DEPRESSION
     Route: 048
  9. NORVASC [Concomitant]
     Indication: ESSENTIAL HYPERTENSION
     Route: 048
  10. ZOCOR [Concomitant]
     Indication: HYPERCHOLESTEROLAEMIA
     Route: 048

REACTIONS (1)
  - CHEST PAIN [None]
